FAERS Safety Report 7059670-4 (Version None)
Quarter: 2010Q4

REPORT INFORMATION
  Report Type: 
  Country: None (occurrence: None)
  Receive Date: 20101025
  Receipt Date: 20101015
  Transmission Date: 20110411
  Serious: Yes (Other)
  Sender: FDA-Public Use
  Company Number: FR-SHIRE-SPV1-2010-01803

PATIENT

DRUGS (1)
  1. ELAPRASE [Suspect]
     Indication: MUCOPOLYSACCHARIDOSIS II
     Dosage: 8 MG, 1X/WEEK
     Route: 041
     Dates: start: 20080513

REACTIONS (4)
  - CHILLS [None]
  - CYANOSIS [None]
  - HYPERTENSION [None]
  - INFUSION RELATED REACTION [None]
